FAERS Safety Report 7451911-4 (Version None)
Quarter: 2011Q2

REPORT INFORMATION
  Report Type: 
  Country: None (occurrence: None)
  Receive Date: 20110502
  Receipt Date: 20110426
  Transmission Date: 20111010
  Serious: Yes (Other)
  Sender: FDA-Public Use
  Company Number: US-MERCK-1102USA02924

PATIENT
  Age: 61 Year
  Sex: Male
  Weight: 122 kg

DRUGS (6)
  1. ALOXI [Concomitant]
     Route: 042
     Dates: start: 20110221
  2. IVEMEND [Suspect]
     Indication: PROPHYLAXIS OF NAUSEA AND VOMITING
     Route: 042
     Dates: start: 20110321
  3. IVEMEND [Suspect]
     Route: 042
     Dates: start: 20110221
  4. DOXORUBICIN [Concomitant]
     Route: 042
     Dates: start: 20110221
  5. CYTOXAN [Concomitant]
     Route: 042
     Dates: start: 20110221
  6. DEXAMETHASONE [Concomitant]
     Route: 042
     Dates: start: 20110221

REACTIONS (9)
  - INFUSION SITE PAIN [None]
  - PAIN [None]
  - INFUSION SITE DISCOMFORT [None]
  - PAIN IN EXTREMITY [None]
  - ERYTHEMA [None]
  - RASH [None]
  - INFUSION SITE PHLEBITIS [None]
  - INFUSION SITE ERYTHEMA [None]
  - INFUSION SITE URTICARIA [None]
